FAERS Safety Report 5458588-8 (Version None)
Quarter: 2007Q3

REPORT INFORMATION
  Report Type: 
  Country: None (occurrence: None)
  Receive Date: 20070919
  Receipt Date: 20070910
  Transmission Date: 20080115
  Serious: Yes (Death)
  Sender: FDA-Public Use
  Company Number: ES-BRISTOL-MYERS SQUIBB COMPANY-13912472

PATIENT

DRUGS (2)
  1. IFOSFAMIDE [Suspect]
     Indication: SARCOMA
     Dosage: DOSAGE:12G/M2/DAY
  2. DOXORUBICIN HCL [Suspect]
     Indication: SARCOMA
     Route: 040

REACTIONS (1)
  - DEATH [None]
